FAERS Safety Report 8475582-3 (Version None)
Quarter: 2012Q2

REPORT INFORMATION
  Report Type: 
  Country: None (occurrence: None)
  Receive Date: 20120628
  Receipt Date: 20120621
  Transmission Date: 20120825
  Serious: Yes (Other)
  Sender: FDA-Public Use
  Company Number: PHHY2012BR055215

PATIENT
  Sex: Female

DRUGS (2)
  1. AMLODIPINE [Suspect]
     Dosage: 1 DF (320/5 MG), ONE TABLET
  2. AMLODIPINE [Suspect]
     Dosage: 1 DF (320/5 MG), TWO TABLETS IN SINGLE DOSE

REACTIONS (2)
  - UPPER LIMB FRACTURE [None]
  - MEMORY IMPAIRMENT [None]
